FAERS Safety Report 15628867 (Version 1)
Quarter: 2018Q4

REPORT INFORMATION
  Report Type: Spontaneous
  Country: US (occurrence: US)
  Receive Date: 20181116
  Receipt Date: 20181116
  Transmission Date: 20190205
  Serious: Yes (Death)
  Sender: FDA-Public Use
  Company Number: US-CELGENEUS-USA-20181104542

PATIENT
  Age: 86 Year
  Sex: Male

DRUGS (5)
  1. THALOMID [Suspect]
     Active Substance: THALIDOMIDE
     Dosage: 100-300MG
     Route: 048
     Dates: start: 200708
  2. THALOMID [Suspect]
     Active Substance: THALIDOMIDE
     Dosage: 100 MILLIGRAM
     Route: 048
     Dates: start: 200711
  3. THALOMID [Suspect]
     Active Substance: THALIDOMIDE
     Indication: ASTHENIA
     Dosage: 300 MILLIGRAM
     Route: 048
     Dates: start: 200603
  4. THALOMID [Suspect]
     Active Substance: THALIDOMIDE
     Indication: PLASMA CELL MYELOMA
     Dosage: 400 MILLIGRAM
     Route: 048
     Dates: start: 200601
  5. THALOMID [Suspect]
     Active Substance: THALIDOMIDE
     Dosage: 100 MILLIGRAM
     Route: 048
     Dates: start: 20100813, end: 20181103

REACTIONS (1)
  - Unevaluable event [Fatal]

NARRATIVE: CASE EVENT DATE: 20181103
